FAERS Safety Report 7119836-1 (Version None)
Quarter: 2010Q4

REPORT INFORMATION
  Report Type: 
  Country: None (occurrence: None)
  Receive Date: 20101123
  Receipt Date: 20100902
  Transmission Date: 20110411
  Serious: No
  Sender: FDA-Public Use
  Company Number: US-BRISTOL-MYERS SQUIBB COMPANY-15271521

PATIENT
  Age: 75 Year
  Sex: Male

DRUGS (7)
  1. ONGLYZA [Suspect]
     Dosage: SWITCHED TO 2.5MG ON 17MAY10
     Dates: start: 20100506, end: 20100827
  2. ACTOS [Concomitant]
  3. ALLOPURINOL [Concomitant]
  4. AMARYL [Concomitant]
  5. ASPIRIN [Concomitant]
  6. LIPITOR [Concomitant]
  7. VASOTEC [Concomitant]

REACTIONS (1)
  - CONSTIPATION [None]
